FAERS Safety Report 6740244-7 (Version None)
Quarter: 2010Q2

REPORT INFORMATION
  Report Type: 
  Country: None (occurrence: None)
  Receive Date: 20100525
  Receipt Date: 20100517
  Transmission Date: 20101027
  Serious: Yes (Hospitalization)
  Sender: FDA-Public Use
  Company Number: Z0003214B

PATIENT
  Sex: Female
  Weight: 59.5 kg

DRUGS (4)
  1. CHLORAMBUCIL [Suspect]
     Route: 042
     Dates: start: 20091216
  2. FRAXIPARINE [Concomitant]
     Indication: THROMBOSIS PROPHYLAXIS
     Route: 058
     Dates: start: 20100322, end: 20100329
  3. SMECTA [Concomitant]
     Route: 048
     Dates: start: 20100322, end: 20100329
  4. LOPERAMIDE [Concomitant]
     Dosage: 2MG UNKNOWN
     Route: 048
     Dates: start: 20100322, end: 20100329

REACTIONS (1)
  - PNEUMONIA [None]
